FAERS Safety Report 21536594 (Version 7)
Quarter: 2023Q1

REPORT INFORMATION
  Report Type: Spontaneous
  Country: JP (occurrence: JP)
  Receive Date: 20221101
  Receipt Date: 20230317
  Transmission Date: 20230418
  Serious: Yes (Other)
  Sender: FDA-Public Use
  Company Number: JP-ONO-2022JP029314

PATIENT
  Age: 69 Year
  Sex: Female

DRUGS (5)
  1. YERVOY [Suspect]
     Active Substance: IPILIMUMAB
     Indication: Metastatic renal cell carcinoma
     Route: 041
  2. OPDIVO [Suspect]
     Active Substance: NIVOLUMAB
     Indication: Metastatic renal cell carcinoma
     Route: 041
  3. PREDNISOLONE [Suspect]
     Active Substance: PREDNISOLONE
     Indication: Drug eruption
     Dosage: 0.7 MG/KG, EVERYDAY
  4. PREDNISOLONE [Suspect]
     Active Substance: PREDNISOLONE
     Dosage: UNK UNK, EVERYDAY, DOSE OF STEROID WAS SLOWLY REDUCED
  5. PREDNISOLONE [Suspect]
     Active Substance: PREDNISOLONE
     Dosage: 0.7 MG/KG, EVERYDAY

REACTIONS (2)
  - Steroid diabetes [Unknown]
  - Drug eruption [Unknown]
